FAERS Safety Report 16294509 (Version 1)
Quarter: 2019Q2

REPORT INFORMATION
  Report Type: Spontaneous
  Country: US (occurrence: US)
  Receive Date: 20190509
  Receipt Date: 20190509
  Transmission Date: 20190711
  Serious: No
  Sender: FDA-Public Use
  Company Number: US-ROCHE-2196098

PATIENT
  Sex: Female

DRUGS (3)
  1. OXYGEN. [Concomitant]
     Active Substance: OXYGEN
     Dosage: 4 TO 5 LITRE, AROUND 3 MONTHS AGO
     Route: 065
  2. ESBRIET [Suspect]
     Active Substance: PIRFENIDONE
     Indication: IDIOPATHIC PULMONARY FIBROSIS
     Route: 048
  3. OXYGEN. [Concomitant]
     Active Substance: OXYGEN
     Dosage: FOR 5 YEARS
     Route: 065

REACTIONS (1)
  - Malaise [Unknown]

NARRATIVE: CASE EVENT DATE: 201807
